FAERS Safety Report 7007315-1 (Version None)
Quarter: 2010Q3

REPORT INFORMATION
  Report Type: 
  Country: None (occurrence: None)
  Receive Date: 20100922
  Receipt Date: 20100920
  Transmission Date: 20110219
  Serious: Yes (Death)
  Sender: FDA-Public Use
  Company Number: PHHY2010US50160

PATIENT
  Sex: Male
  Weight: 102.05 kg

DRUGS (1)
  1. EXJADE [Suspect]
     Indication: NEOPLASM
     Dosage: 2000 MG/DAY
     Route: 048
     Dates: start: 20081021

REACTIONS (2)
  - LEUKAEMIA [None]
  - MALIGNANT NEOPLASM PROGRESSION [None]
